FAERS Safety Report 21222775 (Version 1)
Quarter: 2022Q3

REPORT INFORMATION
  Report Type: Spontaneous
  Country: IT (occurrence: IT)
  Receive Date: 20220817
  Receipt Date: 20220817
  Transmission Date: 20221026
  Serious: Yes (Hospitalization, Other)
  Sender: FDA-Public Use
  Company Number: IT-EMA-DD-20220810-7180175-113606

PATIENT

DRUGS (9)
  1. DOLUTEGRAVIR [Interacting]
     Active Substance: DOLUTEGRAVIR
     Indication: HIV infection
     Dosage: UNK
     Route: 065
  2. CLOPIDOGREL [Interacting]
     Active Substance: CLOPIDOGREL BISULFATE
     Indication: Myocardial infarction
     Dosage: UNK
     Route: 065
  3. DARUNAVIR [Interacting]
     Active Substance: DARUNAVIR
     Indication: HIV infection
     Dosage: UNK
     Route: 065
  4. ETRAVIRINE [Interacting]
     Active Substance: ETRAVIRINE
     Indication: HIV infection
     Dosage: UNK
     Route: 065
  5. ATORVASTATIN CALCIUM [Interacting]
     Active Substance: ATORVASTATIN CALCIUM
     Indication: Myocardial infarction
     Dosage: 80 MG, QD
     Route: 065
  6. ATORVASTATIN CALCIUM [Interacting]
     Active Substance: ATORVASTATIN CALCIUM
     Dosage: 20 MG, QD
     Route: 065
  7. VEMLIDY [Interacting]
     Active Substance: TENOFOVIR ALAFENAMIDE FUMARATE
     Indication: Product used for unknown indication
     Dosage: UNK
     Route: 065
  8. TICAGRELOR [Interacting]
     Active Substance: TICAGRELOR
     Indication: Myocardial infarction
     Dosage: UNK
     Route: 065
  9. COBICISTAT + DARUNAVIR + EMTRICITABINA + TENOFOVIR ALAFENAMIDA [Concomitant]
     Indication: HIV infection
     Dosage: UNK
     Route: 065

REACTIONS (4)
  - Acute myocardial infarction [Unknown]
  - COVID-19 [Unknown]
  - Drug interaction [Unknown]
  - Product use in unapproved indication [Not Recovered/Not Resolved]
